FAERS Safety Report 11047599 (Version 6)
Quarter: 2015Q4

REPORT INFORMATION
  Report Type: Report from Study
  Country: DE (occurrence: DE)
  Receive Date: 20150420
  Receipt Date: 20151215
  Transmission Date: 20160304
  Serious: Yes (Death, Hospitalization)
  Sender: FDA-Public Use
  Company Number: DE-ROCHE-1522694

PATIENT
  Age: 60 Year
  Sex: Female
  Weight: 68 kg

DRUGS (14)
  1. GRANOZYTE [Concomitant]
     Indication: NEUTROPENIA
     Route: 058
     Dates: start: 20140313, end: 20140313
  2. EUTHYROX [Concomitant]
     Active Substance: LEVOTHYROXINE SODIUM
     Indication: THYROID DISORDER
     Route: 048
     Dates: end: 20150530
  3. LOPERAMID [Concomitant]
     Active Substance: LOPERAMIDE
     Indication: DIARRHOEA
     Route: 048
     Dates: start: 20140211, end: 20140304
  4. HERCEPTIN [Concomitant]
     Active Substance: TRASTUZUMAB
     Route: 042
     Dates: start: 20150318, end: 20150530
  5. NEULASTA [Concomitant]
     Active Substance: PEGFILGRASTIM
     Indication: NEUTROPENIA
     Route: 058
     Dates: start: 20140326, end: 20140507
  6. HERCEPTIN [Concomitant]
     Active Substance: TRASTUZUMAB
     Indication: BREAST CANCER
     Route: 042
     Dates: start: 20140121, end: 20140121
  7. HERCEPTIN [Concomitant]
     Active Substance: TRASTUZUMAB
     Route: 042
     Dates: start: 20140211, end: 20150225
  8. SPASMEX (GERMANY) [Concomitant]
     Indication: HYPOTONIA
     Route: 048
     Dates: start: 201502, end: 20150530
  9. PERTUZUMAB [Suspect]
     Active Substance: PERTUZUMAB
     Indication: BREAST CANCER
     Dosage: LOADING DOSE
     Route: 042
     Dates: start: 20140121
  10. FLUCONAZOL [Concomitant]
     Active Substance: FLUCONAZOLE
     Indication: FUNGAL INFECTION
     Route: 042
     Dates: start: 201505, end: 20150530
  11. PERTUZUMAB [Suspect]
     Active Substance: PERTUZUMAB
     Dosage: MAINTENANCE DOSE
     Route: 042
     Dates: start: 20140211, end: 20150530
  12. DOCETAXEL. [Concomitant]
     Active Substance: DOCETAXEL
     Indication: BREAST CANCER
     Route: 042
     Dates: start: 20140121, end: 20150530
  13. EXEMESTANE. [Concomitant]
     Active Substance: EXEMESTANE
     Indication: BREAST CANCER
     Route: 048
     Dates: start: 201110
  14. METROGEL [Concomitant]
     Active Substance: METRONIDAZOLE
     Indication: URTICARIA
     Route: 065
     Dates: start: 20150113, end: 20150530

REACTIONS (7)
  - Dyspnoea [Recovered/Resolved]
  - General physical health deterioration [Recovered/Resolved]
  - Myositis [Not Recovered/Not Resolved]
  - Aspiration [Fatal]
  - Bone pain [Not Recovered/Not Resolved]
  - Dysphagia [Fatal]
  - Myopathy [Not Recovered/Not Resolved]

NARRATIVE: CASE EVENT DATE: 20150113
